FAERS Safety Report 24224215 (Version 2)
Quarter: 2024Q3

REPORT INFORMATION
  Report Type: Report from Study
  Country: CA (occurrence: CA)
  Receive Date: 20240819
  Receipt Date: 20240923
  Transmission Date: 20241016
  Serious: Yes (Other)
  Sender: SK LIFE SCIENCE
  Company Number: CA-SK LIFE SCIENCE, INC.-SKPVG-2024-001440

PATIENT

DRUGS (8)
  1. XCOPRI [Suspect]
     Active Substance: CENOBAMATE
     Indication: Temporal lobe epilepsy
     Dosage: 12.5 MILLIGRAM, DAILY
     Route: 048
     Dates: start: 20240601, end: 20240615
  2. XCOPRI [Suspect]
     Active Substance: CENOBAMATE
     Indication: Epilepsy
     Dosage: 18.75 MILLIGRAM, DAILY
     Route: 048
     Dates: start: 20240616, end: 20240714
  3. XCOPRI [Suspect]
     Active Substance: CENOBAMATE
     Dosage: 21.88 MILLIGRAM, DAILY
     Route: 048
     Dates: start: 20240715, end: 20240724
  4. XCOPRI [Suspect]
     Active Substance: CENOBAMATE
     Dosage: 18.75 MILLIGRAM, DAILY
     Route: 048
     Dates: start: 20240725, end: 2024
  5. LAMOTRIGINE [Concomitant]
     Active Substance: LAMOTRIGINE
     Indication: Product used for unknown indication
     Dosage: 75 MILLIGRAM, BID
     Route: 065
  6. TOPIRAMATE [Concomitant]
     Active Substance: TOPIRAMATE
     Indication: Product used for unknown indication
     Dosage: 25 MG QAM 75 MG QPM
     Route: 065
  7. CLONAZEPAM [Concomitant]
     Active Substance: CLONAZEPAM
     Indication: Product used for unknown indication
     Dosage: UNK
     Route: 065
  8. ESCITALOPRAM [Concomitant]
     Active Substance: ESCITALOPRAM OXALATE
     Indication: Product used for unknown indication
     Dosage: UNK
     Route: 065

REACTIONS (18)
  - Hemiparesis [Unknown]
  - Change in seizure presentation [Not Recovered/Not Resolved]
  - Fear [Unknown]
  - Intentional product use issue [Unknown]
  - Wrong technique in product usage process [Unknown]
  - Musculoskeletal stiffness [Unknown]
  - Bruxism [Unknown]
  - Petit mal epilepsy [Unknown]
  - Blister [Unknown]
  - Condition aggravated [Unknown]
  - Cough [Unknown]
  - Oropharyngeal pain [Unknown]
  - Dysphagia [Unknown]
  - Grip strength decreased [Unknown]
  - Fatigue [Not Recovered/Not Resolved]
  - Rash [Recovered/Resolved]
  - Dyspnoea [Unknown]
  - Speech disorder [Unknown]

NARRATIVE: CASE EVENT DATE: 20240101
